FAERS Safety Report 10070408 (Version 1)
Quarter: 2014Q2

REPORT INFORMATION
  Report Type: Spontaneous
  Country: US (occurrence: US)
  Receive Date: 20140410
  Receipt Date: 20140410
  Transmission Date: 20141212
  Serious: Yes (Hospitalization)
  Sender: FDA-Public Use
  Company Number: US-CELGENEUS-163-21880-14035587

PATIENT
  Sex: Female

DRUGS (1)
  1. REVLIMID [Suspect]
     Indication: PLASMA CELL MYELOMA
     Dosage: 10 MILLIGRAM
     Route: 048
     Dates: start: 20140227

REACTIONS (6)
  - Accident [Unknown]
  - Toe amputation [Unknown]
  - Nasal congestion [Unknown]
  - Abdominal discomfort [Unknown]
  - Headache [Unknown]
  - Chills [Unknown]
